FAERS Safety Report 24084129 (Version 6)
Quarter: 2025Q3

REPORT INFORMATION
  Report Type: Spontaneous
  Country: CA (occurrence: CA)
  Receive Date: 20240712
  Receipt Date: 20250702
  Transmission Date: 20251021
  Serious: Yes (Other)
  Sender: PFIZER
  Company Number: CA-PFIZER INC-202400210204

PATIENT
  Age: 79 Year
  Sex: Female

DRUGS (13)
  1. RUXIENCE [Suspect]
     Active Substance: RITUXIMAB-PVVR
     Indication: Rheumatoid arthritis
     Route: 042
     Dates: start: 20210409, end: 20210423
  2. RUXIENCE [Suspect]
     Active Substance: RITUXIMAB-PVVR
     Route: 042
     Dates: start: 20220126
  3. RUXIENCE [Suspect]
     Active Substance: RITUXIMAB-PVVR
     Route: 042
     Dates: start: 20220209
  4. RUXIENCE [Suspect]
     Active Substance: RITUXIMAB-PVVR
     Route: 042
     Dates: start: 20240724
  5. RUXIENCE [Suspect]
     Active Substance: RITUXIMAB-PVVR
     Route: 042
     Dates: start: 20240807
  6. ANASTROZOLE [Concomitant]
     Active Substance: ANASTROZOLE
  7. ELIQUIS [Concomitant]
     Active Substance: APIXABAN
  8. FOLIC ACID [Concomitant]
     Active Substance: FOLIC ACID
  9. HYDROCHLOROTHIAZIDE [Concomitant]
     Active Substance: HYDROCHLOROTHIAZIDE
  10. LIPITOR [Concomitant]
     Active Substance: ATORVASTATIN CALCIUM
  11. PLAQUENIL [Concomitant]
     Active Substance: HYDROXYCHLOROQUINE SULFATE
  12. TYLENOL [Concomitant]
     Active Substance: ACETAMINOPHEN
  13. ZOLEDRONIC ACID [Concomitant]
     Active Substance: ZOLEDRONIC ACID

REACTIONS (5)
  - Gastric ulcer [Unknown]
  - Cardiac valve disease [Unknown]
  - Cholelithiasis [Unknown]
  - Condition aggravated [Not Recovered/Not Resolved]
  - Skin wound [Recovering/Resolving]

NARRATIVE: CASE EVENT DATE: 20240501
